FAERS Safety Report 4434468-1 (Version None)
Quarter: 2004Q3

REPORT INFORMATION
  Report Type: 
  Country: None (occurrence: None)
  Receive Date: 20040726
  Receipt Date: 20040303
  Transmission Date: 20050211
  Serious: No
  Sender: FDA-Public Use
  Company Number: USA040259760

PATIENT
  Age: 72 Year
  Sex: Female
  Weight: 75 kg

DRUGS (8)
  1. FORTEO [Suspect]
     Indication: BONE DISORDER
     Dosage: 20 UG/1 DAY
     Dates: start: 20040210, end: 20040301
  2. FORTEO [Suspect]
     Indication: OSTEOGENESIS IMPERFECTA
     Dosage: 20 UG/1 DAY
     Dates: start: 20040210, end: 20040301
  3. PERCOCET [Concomitant]
  4. XANAX [Concomitant]
  5. HYDROCHLOROTHIAZIDE [Concomitant]
  6. LABETALOL HCL [Concomitant]
  7. ACETAMINOPHEN [Concomitant]
  8. ANTIDEPRESSANT [Concomitant]

REACTIONS (2)
  - NERVOUSNESS [None]
  - PAIN IN EXTREMITY [None]
